FAERS Safety Report 8770102 (Version 4)
Quarter: 2013Q2

REPORT INFORMATION
  Report Type: Report from Study
  Country: JP (occurrence: JP)
  Receive Date: 20120905
  Receipt Date: 20130610
  Transmission Date: 20140414
  Serious: Yes (Hospitalization, Other)
  Sender: FDA-Public Use
  Company Number: JP-MERCK-1208JPN006550

PATIENT
  Age: 58 Year
  Sex: Male
  Weight: 76 kg

DRUGS (10)
  1. PEGINTRON [Suspect]
     Indication: CHRONIC HEPATITIS C
     Dosage: 1.5 MICROGRAM PER KILOGRAM, QW
     Route: 058
     Dates: start: 20120621, end: 20120725
  2. PEGINTRON [Suspect]
     Dosage: 100 MICROGRAM, QW
     Route: 058
     Dates: start: 20120726, end: 20120726
  3. REBETOL [Suspect]
     Indication: CHRONIC HEPATITIS C
     Dosage: 800 MG, QD
     Route: 048
     Dates: start: 20120621, end: 20120725
  4. REBETOL [Suspect]
     Dosage: 400 MG, QD
     Route: 048
     Dates: start: 20120726, end: 20120802
  5. TELAVIC [Suspect]
     Indication: CHRONIC HEPATITIS C
     Dosage: 2250 MG, QD
     Route: 048
     Dates: start: 20120621, end: 20120802
  6. JANUVIA TABLETS 50MG [Concomitant]
     Indication: DIABETES MELLITUS
     Dosage: 50 MG, QD
     Route: 048
  7. OLMETEC [Concomitant]
     Indication: HYPERTENSION
     Dosage: 20 MG, QD
     Route: 048
  8. VOLTAREN [Concomitant]
     Indication: PROPHYLAXIS
     Dosage: 50 MG, QD, AS NEEDED
     Dates: start: 20120622, end: 20120720
  9. VOLTAREN SR [Concomitant]
     Indication: PROPHYLAXIS
     Dosage: 75 MG, QD
     Route: 048
     Dates: start: 20120624, end: 20120808
  10. CRAVIT [Concomitant]
     Indication: EYE DISCHARGE
     Dosage: 5 ML, QD, EED
     Route: 031
     Dates: start: 20120830, end: 20120830

REACTIONS (15)
  - Anaemia [Recovered/Resolved]
  - Anaemia [Not Recovered/Not Resolved]
  - Conjunctival disorder [Unknown]
  - Eye discharge [Unknown]
  - Haematochezia [Unknown]
  - Blister [Unknown]
  - Erythema [Unknown]
  - Oropharyngeal pain [Unknown]
  - Hepatic function abnormal [Unknown]
  - Eyelid oedema [Unknown]
  - Retinopathy [Unknown]
  - Dizziness [Unknown]
  - Blood pressure decreased [Unknown]
  - Malaise [Not Recovered/Not Resolved]
  - Rash [Not Recovered/Not Resolved]
